FAERS Safety Report 12595396 (Version 1)
Quarter: 2016Q3

REPORT INFORMATION
  Report Type: Spontaneous
  Country: US (occurrence: US)
  Receive Date: 20160726
  Receipt Date: 20160726
  Transmission Date: 20161109
  Serious: No
  Sender: FDA-Public Use
  Company Number: US-ENDO PHARMACEUTICALS INC.-2016-001640

PATIENT
  Sex: Male
  Weight: 81.72 kg

DRUGS (2)
  1. LISINOPRIL TABLETS [Suspect]
     Active Substance: LISINOPRIL
     Indication: HYPERTENSION
     Route: 048
     Dates: end: 201601
  2. LISINOPRIL TABLETS [Suspect]
     Active Substance: LISINOPRIL
     Route: 048
     Dates: start: 201601

REACTIONS (2)
  - Ejaculation failure [Unknown]
  - Ill-defined disorder [Unknown]

NARRATIVE: CASE EVENT DATE: 2016
